FAERS Safety Report 4468350-0 (Version None)
Quarter: 2004Q4

REPORT INFORMATION
  Report Type: 
  Country: None (occurrence: None)
  Receive Date: 20041006
  Receipt Date: 20040923
  Transmission Date: 20050328
  Serious: Yes (Other)
  Sender: FDA-Public Use
  Company Number: 2004069169

PATIENT
  Age: 57 Year
  Sex: Female
  Weight: 69.4003 kg

DRUGS (1)
  1. LISTERINE (EUCALYPTOL, MENTHOL, METHYL SALICYLATE, THYMOL) [Suspect]
     Indication: DENTAL CARE
     Dosage: ONE CAPFUL BID, ORAL TOPICAL
     Route: 048

REACTIONS (2)
  - CHRONIC LEUKAEMIA [None]
  - METASTASES TO LYMPH NODES [None]
